FAERS Safety Report 7490556-7 (Version None)
Quarter: 2011Q2

REPORT INFORMATION
  Report Type: 
  Country: None (occurrence: None)
  Receive Date: 20110519
  Receipt Date: 20110517
  Transmission Date: 20111010
  Serious: Yes (Life-Threatening)
  Sender: FDA-Public Use
  Company Number: JP-SANOFI-AVENTIS-200910353JP

PATIENT
  Age: 35 Year
  Sex: Male
  Weight: 67.4 kg

DRUGS (11)
  1. LASIX [Concomitant]
     Route: 048
     Dates: start: 20090206
  2. HANP [Concomitant]
     Route: 042
     Dates: start: 20090113
  3. LASIX [Concomitant]
     Route: 048
     Dates: start: 20090120, end: 20090123
  4. LASIX [Concomitant]
     Route: 048
     Dates: start: 20090124, end: 20090205
  5. FEXOFENADINE HCL [Suspect]
     Dosage: DOSE UNIT: 60 MG
     Route: 048
     Dates: start: 20090130, end: 20090203
  6. LASIX [Concomitant]
     Route: 048
     Dates: start: 20090113, end: 20090119
  7. SULBACILLIN [Concomitant]
     Indication: INFECTION
     Route: 042
     Dates: start: 20090113
  8. ALDACTONE [Concomitant]
     Route: 048
     Dates: start: 20090113, end: 20090123
  9. ALDACTONE [Concomitant]
     Route: 048
     Dates: start: 20090124, end: 20090205
  10. ALDACTONE [Concomitant]
     Route: 048
     Dates: start: 20090206, end: 20090213
  11. GENTACIN [Concomitant]
     Indication: INFECTION
     Route: 042
     Dates: start: 20090113

REACTIONS (3)
  - WHITE BLOOD CELL COUNT DECREASED [None]
  - GRANULOCYTOPENIA [None]
  - HEPATIC FUNCTION ABNORMAL [None]
